FAERS Safety Report 10228847 (Version 4)
Quarter: 2014Q4

REPORT INFORMATION
  Report Type: Report from Study
  Country: CA (occurrence: CA)
  Receive Date: 20140610
  Receipt Date: 20141008
  Transmission Date: 20150528
  Serious: Yes (Life-Threatening, Hospitalization, Other)
  Sender: FDA-Public Use
  Company Number: CA-ABBVIE-14P-028-1242700-00

PATIENT
  Age: 70 Year
  Sex: Male

DRUGS (1)
  1. HUMIRA [Suspect]
     Active Substance: ADALIMUMAB
     Indication: PSORIASIS
     Route: 058
     Dates: start: 20140327, end: 20140514

REACTIONS (12)
  - Immune system disorder [Unknown]
  - Pyrexia [Unknown]
  - Influenza like illness [Unknown]
  - Sepsis [Not Recovered/Not Resolved]
  - Kidney infection [Not Recovered/Not Resolved]
  - Abasia [Not Recovered/Not Resolved]
  - Renal pain [Not Recovered/Not Resolved]
  - Urosepsis [Unknown]
  - Urinary tract infection [Not Recovered/Not Resolved]
  - Unevaluable event [Unknown]
  - Investigation [Unknown]
  - Pleural effusion [Unknown]

NARRATIVE: CASE EVENT DATE: 201405
